FAERS Safety Report 7287376-5 (Version None)
Quarter: 2011Q1

REPORT INFORMATION
  Report Type: 
  Country: None (occurrence: None)
  Receive Date: 20110211
  Receipt Date: 20110210
  Transmission Date: 20110831
  Serious: No
  Sender: FDA-Public Use
  Company Number: US-JNJFOC-20110106156

PATIENT
  Sex: Female
  Weight: 68.04 kg

DRUGS (3)
  1. FENTANYL-100 [Suspect]
     Indication: SPINAL CORD INJURY
     Dosage: NDC NUMBER: 0781-7242-55
     Route: 062
  2. SPRINTEC [Concomitant]
     Indication: ENDOMETRIOSIS
     Route: 048
  3. FENTANYL-100 [Suspect]
     Indication: CAUDA EQUINA SYNDROME
     Dosage: NDC NUMBER: 0781-7242-55
     Route: 062

REACTIONS (10)
  - PRURITUS [None]
  - THERAPEUTIC RESPONSE DELAYED [None]
  - ACTIVITIES OF DAILY LIVING IMPAIRED [None]
  - INAPPROPRIATE SCHEDULE OF DRUG ADMINISTRATION [None]
  - HEART RATE IRREGULAR [None]
  - FEELING ABNORMAL [None]
  - HYPOAESTHESIA [None]
  - PRODUCT QUALITY ISSUE [None]
  - NAUSEA [None]
  - WITHDRAWAL SYNDROME [None]
